FAERS Safety Report 24869076 (Version 1)
Quarter: 2025Q1

REPORT INFORMATION
  Report Type: Spontaneous
  Country: NL (occurrence: NL)
  Receive Date: 20250121
  Receipt Date: 20250121
  Transmission Date: 20250408
  Serious: Yes (Other)
  Sender: MYLAN
  Company Number: None

PATIENT
  Age: 68 Year
  Sex: Female
  Weight: 99 kg

DRUGS (1)
  1. LYRICA [Suspect]
     Active Substance: PREGABALIN
     Indication: Neuralgia
     Dosage: 150 MILLIGRAM, Q8H, 2 PIECES 3 TIMES A DAY
     Route: 048
     Dates: start: 20240708

REACTIONS (8)
  - Hallucination, visual [Recovered/Resolved]
  - Loss of libido [Not Recovered/Not Resolved]
  - Staring [Not Recovered/Not Resolved]
  - Somnolence [Not Recovered/Not Resolved]
  - Nausea [Not Recovered/Not Resolved]
  - Depressed mood [Not Recovered/Not Resolved]
  - Feeling drunk [Not Recovered/Not Resolved]
  - Anorgasmia [Not Recovered/Not Resolved]
